FAERS Safety Report 5755316-3 (Version None)
Quarter: 2008Q2

REPORT INFORMATION
  Report Type: 
  Country: None (occurrence: None)
  Receive Date: 20080602
  Receipt Date: 20080523
  Transmission Date: 20081010
  Serious: Yes (Hospitalization)
  Sender: FDA-Public Use
  Company Number: JP-BRISTOL-MYERS SQUIBB COMPANY-13929369

PATIENT
  Age: 59 Year
  Sex: Female

DRUGS (11)
  1. ABATACEPT [Suspect]
     Indication: RHEUMATOID ARTHRITIS
     Route: 041
     Dates: start: 20070822, end: 20070905
  2. MOBIC [Suspect]
     Indication: RHEUMATOID ARTHRITIS
     Dosage: GREATER/EQUAL TO 12 WK PRIOR TO ENROLLMENT.DOSAGE:10MG STD
     Route: 048
     Dates: end: 20071003
  3. VOLTAREN [Suspect]
     Indication: RHEUMATOID ARTHRITIS
     Dosage: GREATER/EQUAL TO 12 WK PRIOR TO ENROLLMENT (19SEP07-03OCT07). GIVEN AS 50 MG IN CONMED LIST.
     Route: 054
     Dates: end: 20071003
  4. PREDNISOLONE [Concomitant]
     Indication: RHEUMATOID ARTHRITIS
     Dosage: 12 WEEKS PRIOR TO ENROLLMENT.
     Route: 048
     Dates: end: 20071003
  5. KETOPROFEN [Concomitant]
     Indication: RHEUMATOID ARTHRITIS
     Dosage: PRIOR TO OBTAINING IC.
     Route: 061
     Dates: end: 20071003
  6. GASTER D [Concomitant]
     Indication: PROPHYLAXIS
     Dosage: PRIOR TO OBTAINING IC.
     Route: 048
     Dates: end: 20071003
  7. LIPITOR [Concomitant]
     Indication: HYPERLIPIDAEMIA
     Dosage: PRIOR TO OBTAINING IC.
     Route: 048
     Dates: end: 20071003
  8. GLYSENNID [Concomitant]
     Indication: CONSTIPATION
     Dosage: PRIOR TO OBTAINING IC TILL 21-AUG-07. RESTARTED ON 26-SEP-07 TO 03-OCT-2007
     Route: 048
     Dates: end: 20071003
  9. CLOSTRIDIUM BUTYRICUM [Concomitant]
     Indication: GASTROINTESTINAL INFECTION
     Route: 048
     Dates: start: 20070926, end: 20071002
  10. LACTEC [Concomitant]
     Indication: FLUID REPLACEMENT
     Dosage: 2OCT-2OCT500ML;3OCT-3OCT2500ML;4OCT-4OCT2000ML;5OCT-5OCT2500ML;6OCT-6OCT2000ML;10OCT-10OCT071000ML
     Route: 041
     Dates: start: 20071002, end: 20071015
  11. VITAMIN B COMPLEX CAP [Concomitant]
     Indication: VITAMIN SUPPLEMENTATION
     Route: 041
     Dates: start: 20071002, end: 20071009

REACTIONS (2)
  - GASTRIC ULCER [None]
  - INFLAMMATORY BOWEL DISEASE [None]
